FAERS Safety Report 17848017 (Version 1)
Quarter: 2020Q2

REPORT INFORMATION
  Report Type: Spontaneous
  Country: US (occurrence: US)
  Receive Date: 20200601
  Receipt Date: 20200601
  Transmission Date: 20200714
  Serious: Yes (Life-Threatening, Other)
  Sender: FDA-Public Use
  Company Number: US-GILEAD-2020-0469288

PATIENT
  Age: 79 Year
  Sex: Male
  Weight: 110 kg

DRUGS (18)
  1. REMDESIVIR. [Suspect]
     Active Substance: REMDESIVIR
     Indication: COVID-19
     Dosage: 200 MG
     Route: 042
     Dates: start: 20200513, end: 20200513
  2. FENTANYL. [Concomitant]
     Active Substance: FENTANYL
  3. PROPOFOL. [Concomitant]
     Active Substance: PROPOFOL
  4. FUROSEMIDE. [Concomitant]
     Active Substance: FUROSEMIDE
  5. CISATRACURIUM. [Concomitant]
     Active Substance: CISATRACURIUM
  6. TOCILIZUMAB. [Concomitant]
     Active Substance: TOCILIZUMAB
  7. MEROPENEM. [Concomitant]
     Active Substance: MEROPENEM
  8. MIDAZOLAM. [Concomitant]
     Active Substance: MIDAZOLAM
  9. SIMVASTATIN. [Concomitant]
     Active Substance: SIMVASTATIN
  10. REMDESIVIR. [Suspect]
     Active Substance: REMDESIVIR
     Dosage: 100 MG, QD
     Route: 042
     Dates: start: 20200514, end: 20200518
  11. FAMOTIDINE. [Concomitant]
     Active Substance: FAMOTIDINE
  12. ASPIRIN 81 [Concomitant]
     Active Substance: ASPIRIN
  13. AZITHROMYCIN ANHYDROUS. [Concomitant]
     Active Substance: AZITHROMYCIN ANHYDROUS
  14. ENOXAPARIN [Concomitant]
     Active Substance: ENOXAPARIN
  15. CEFEPIME [Concomitant]
     Active Substance: CEFEPIME HYDROCHLORIDE
  16. ALBUMIN [Concomitant]
     Active Substance: ALBUMIN HUMAN
  17. INSULIN [Concomitant]
     Active Substance: INSULIN NOS
  18. VITAMIN D [COLECALCIFEROL] [Concomitant]
     Active Substance: CHOLECALCIFEROL

REACTIONS (2)
  - Blood urea increased [Not Recovered/Not Resolved]
  - Blood creatinine increased [Not Recovered/Not Resolved]

NARRATIVE: CASE EVENT DATE: 20200518
